FAERS Safety Report 16097776 (Version 2)
Quarter: 2019Q1

REPORT INFORMATION
  Report Type: Spontaneous
  Country: US (occurrence: US)
  Receive Date: 20190320
  Receipt Date: 20190325
  Transmission Date: 20190418
  Serious: No
  Sender: FDA-Public Use
  Company Number: US-BIOMARINAP-US-2019-122519

PATIENT
  Sex: Female
  Weight: 8.99 kg

DRUGS (1)
  1. KUVAN [Suspect]
     Active Substance: SAPROPTERIN DIHYDROCHLORIDE
     Indication: PRODUCT USED FOR UNKNOWN INDICATION
     Dosage: 160 MILLIGRAM
     Route: 048

REACTIONS (5)
  - Vomiting [Unknown]
  - Malaise [Recovering/Resolving]
  - Nasopharyngitis [Unknown]
  - Viral infection [Unknown]
  - Ear infection [Recovering/Resolving]
